FAERS Safety Report 4589124-6 (Version None)
Quarter: 2005Q1

REPORT INFORMATION
  Report Type: 
  Country: None (occurrence: None)
  Receive Date: 20050125
  Receipt Date: 20040903
  Transmission Date: 20050727
  Serious: Yes (Other)
  Sender: FDA-Public Use
  Company Number: USA040361311

PATIENT
  Age: 64 Year
  Sex: Female
  Weight: 59 kg

DRUGS (6)
  1. EVISTA [Suspect]
     Indication: OSTEOPOROSIS
     Dosage: 60 MG DAY
     Dates: start: 20040123
  2. FORTEO [Suspect]
     Indication: OSTEOPOROSIS
     Dosage: 20 UG DAY
     Dates: start: 20040502, end: 20040807
  3. FOSAMAX [Concomitant]
  4. NORPACE [Concomitant]
  5. ATENOLOL [Concomitant]
  6. CALCIUM GLUCONATE [Concomitant]

REACTIONS (2)
  - PALPITATIONS [None]
  - THORACIC VERTEBRAL FRACTURE [None]
